FAERS Safety Report 7908719-2 (Version None)
Quarter: 2011Q4

REPORT INFORMATION
  Report Type: 
  Country: None (occurrence: None)
  Receive Date: 20111111
  Receipt Date: 20111031
  Transmission Date: 20120403
  Serious: Yes (Other)
  Sender: FDA-Public Use
  Company Number: PHHY2011JP97075

PATIENT
  Age: 63 Year
  Sex: Female

DRUGS (1)
  1. ZADITEN [Suspect]
     Indication: RHINITIS ALLERGIC
     Dosage: 1 MG, UNK
     Route: 048
     Dates: start: 20111029

REACTIONS (4)
  - SPEECH DISORDER [None]
  - SOMNOLENCE [None]
  - HYPOAESTHESIA [None]
  - MALAISE [None]
